FAERS Safety Report 4653260-6 (Version None)
Quarter: 2005Q2

REPORT INFORMATION
  Report Type: 
  Country: None (occurrence: None)
  Receive Date: 20050503
  Receipt Date: 20050421
  Transmission Date: 20051028
  Serious: Yes (Death)
  Sender: FDA-Public Use
  Company Number: HQWYE192222APR05

PATIENT
  Age: 70 Year
  Sex: Female

DRUGS (7)
  1. CORDARONE [Suspect]
     Indication: ATRIAL TACHYCARDIA
     Dosage: SEE IMAGE
     Route: 048
     Dates: end: 20000101
  2. CORDARONE [Suspect]
     Indication: ATRIAL TACHYCARDIA
     Dosage: SEE IMAGE
     Route: 048
     Dates: start: 20000101, end: 20000330
  3. CORDARONE [Suspect]
     Indication: ATRIAL TACHYCARDIA
     Dosage: SEE IMAGE
     Route: 048
     Dates: start: 19991224
  4. DILTIAZEM [Concomitant]
  5. SULINDAC [Concomitant]
  6. ASPIRIN [Concomitant]
  7. ESTROGEN NOS (ESTROGEN NOS) [Concomitant]

REACTIONS (4)
  - PNEUMONIA [None]
  - SEPSIS [None]
  - STEVENS-JOHNSON SYNDROME [None]
  - TOXIC EPIDERMAL NECROLYSIS [None]
